FAERS Safety Report 5644170-6 (Version None)
Quarter: 2008Q1

REPORT INFORMATION
  Report Type: 
  Country: None (occurrence: None)
  Receive Date: 20080229
  Receipt Date: 20080225
  Transmission Date: 20080703
  Serious: Yes (Death)
  Sender: FDA-Public Use
  Company Number: US-BAYER-200814865NA

PATIENT
  Sex: Female

DRUGS (1)
  1. YAZ [Suspect]
     Dates: end: 20060901

REACTIONS (2)
  - DYSPNOEA [None]
  - PULMONARY EMBOLISM [None]
